FAERS Safety Report 13269017 (Version 1)
Quarter: 2017Q1

REPORT INFORMATION
  Report Type: Spontaneous
  Country: US (occurrence: US)
  Receive Date: 20170224
  Receipt Date: 20170224
  Transmission Date: 20170428
  Serious: Yes (Hospitalization)
  Sender: FDA-Public Use
  Company Number: US-JNJFOC-20170114538

PATIENT
  Age: 73 Year
  Sex: Female
  Weight: 71.22 kg

DRUGS (19)
  1. CALCIUM + VITAMIN D3 [Concomitant]
     Active Substance: CALCIUM CARBONATE\CHOLECALCIFEROL
  2. VITAMIN B12 [Concomitant]
     Active Substance: CYANOCOBALAMIN
  3. DARZALEX [Suspect]
     Active Substance: DARATUMUMAB
     Indication: PLASMA CELL MYELOMA
     Dosage: 400MG/20ML
     Route: 042
     Dates: start: 20170112
  4. ASPIRIN. [Concomitant]
     Active Substance: ASPIRIN
  5. LISINOPRIL. [Concomitant]
     Active Substance: LISINOPRIL
  6. NORVASC [Concomitant]
     Active Substance: AMLODIPINE BESYLATE
  7. FENOFIBRATE. [Concomitant]
     Active Substance: FENOFIBRATE
  8. DIPHENHYDRAMINE. [Concomitant]
     Active Substance: DIPHENHYDRAMINE
  9. APIDRA [Concomitant]
     Active Substance: INSULIN GLULISINE
  10. PRAVASTATIN. [Concomitant]
     Active Substance: PRAVASTATIN
  11. VELCADE [Concomitant]
     Active Substance: BORTEZOMIB
  12. LEVEMIR [Concomitant]
     Active Substance: INSULIN DETEMIR
  13. TRADJENTA [Concomitant]
     Active Substance: LINAGLIPTIN
  14. VALTREX [Concomitant]
     Active Substance: VALACYCLOVIR HYDROCHLORIDE
  15. DEXAMETHASONE. [Concomitant]
     Active Substance: DEXAMETHASONE
  16. PRILOSEC [Concomitant]
     Active Substance: OMEPRAZOLE MAGNESIUM
  17. FLUOXETINE [Concomitant]
     Active Substance: FLUOXETINE HYDROCHLORIDE
  18. VITAMIN D [Concomitant]
     Active Substance: CHOLECALCIFEROL
  19. REVLIMID [Concomitant]
     Active Substance: LENALIDOMIDE

REACTIONS (9)
  - Infusion related reaction [Unknown]
  - Hyperhidrosis [Unknown]
  - Underdose [Unknown]
  - Tremor [Unknown]
  - Hypoxia [Recovered/Resolved]
  - Oxygen saturation decreased [Recovered/Resolved]
  - Dyspnoea [Recovered/Resolved]
  - Haemoglobin decreased [Not Recovered/Not Resolved]
  - Cough [Unknown]

NARRATIVE: CASE EVENT DATE: 20170112
